FAERS Safety Report 6579094-3 (Version None)
Quarter: 2010Q1

REPORT INFORMATION
  Report Type: 
  Country: None (occurrence: None)
  Receive Date: 20100212
  Receipt Date: 20100208
  Transmission Date: 20100710
  Serious: Yes (Hospitalization, Congenital Anomaly)
  Sender: FDA-Public Use
  Company Number: NL-WYE-G04549309

PATIENT
  Sex: Male

DRUGS (5)
  1. EFFEXOR XR [Suspect]
     Indication: DEPRESSION
     Route: 064
     Dates: start: 20080716
  2. EFFEXOR XR [Suspect]
     Indication: ANXIETY DISORDER
  3. FOLIC ACID [Concomitant]
     Indication: PROPHYLAXIS
     Route: 064
     Dates: start: 20080915, end: 20090301
  4. ALDOMET [Concomitant]
     Indication: PREGNANCY INDUCED HYPERTENSION
     Dosage: 250 MG
     Route: 064
     Dates: start: 20090810, end: 20090816
  5. ALDOMET [Concomitant]
     Dosage: 500 MG
     Route: 064
     Dates: start: 20090817, end: 20090826

REACTIONS (6)
  - ABO INCOMPATIBILITY [None]
  - DRUG EXPOSURE DURING PREGNANCY [None]
  - DRUG WITHDRAWAL SYNDROME NEONATAL [None]
  - MACROSOMIA [None]
  - OXYGEN SATURATION DECREASED [None]
  - POLYHYDRAMNIOS [None]
